FAERS Safety Report 10678274 (Version 1)
Quarter: 2014Q4

REPORT INFORMATION
  Report Type: Spontaneous
  Country: JP (occurrence: None)
  Receive Date: 20141223
  Receipt Date: 20141223
  Transmission Date: 20150529
  Serious: Yes (Other)
  Sender: FDA-Public Use
  Company Number: JP2014JPN035621

PATIENT
  Sex: Male

DRUGS (2)
  1. EPZICOM(ABACAVIR SULPHATE, LAMIVUDINE) [Concomitant]
  2. TIVICAY [Suspect]
     Active Substance: DOLUTEGRAVIR SODIUM
     Indication: HIV INFECTION
     Dosage: 1 DF, QD, ORAL
     Route: 048
     Dates: start: 20141107

REACTIONS (1)
  - Blood HIV RNA increased [None]

NARRATIVE: CASE EVENT DATE: 20141201
